FAERS Safety Report 7889768-X (Version None)
Quarter: 2011Q4

REPORT INFORMATION
  Report Type: 
  Country: None (occurrence: None)
  Receive Date: 20111103
  Receipt Date: 20111027
  Transmission Date: 20120403
  Serious: Yes (Other)
  Sender: FDA-Public Use
  Company Number: US-US-EMD SERONO, INC.-7083338

PATIENT
  Sex: Male

DRUGS (3)
  1. EGRIFTA [Suspect]
     Indication: LIPODYSTROPHY ACQUIRED
     Route: 058
     Dates: start: 20110201, end: 20110520
  2. ACTOPLUS MET [Concomitant]
     Indication: TYPE 2 DIABETES MELLITUS
     Dosage: 15/850
  3. AMARYL [Concomitant]
     Indication: TYPE 2 DIABETES MELLITUS

REACTIONS (2)
  - BLOOD GLUCOSE INCREASED [None]
  - GLYCOSYLATED HAEMOGLOBIN INCREASED [None]
